FAERS Safety Report 25999951 (Version 1)
Quarter: 2025Q4

REPORT INFORMATION
  Report Type: Spontaneous
  Country: US (occurrence: None)
  Receive Date: 20251103
  Receipt Date: 20251103
  Transmission Date: 20260118
  Serious: Yes (Other)
  Sender: FDA-CTU
  Company Number: None

PATIENT
  Age: 53 Year
  Sex: Female
  Weight: 63.5 kg

DRUGS (5)
  1. CORTICOTROPIN [Suspect]
     Active Substance: CORTICOTROPIN
     Indication: Multiple sclerosis
     Dosage: FREQUENCY : DAILY;?
     Route: 058
     Dates: start: 20251008, end: 20251022
  2. Magnesium Oxide Oral Tablet [Concomitant]
  3. VITAMIN D3 [Concomitant]
     Active Substance: CHOLECALCIFEROL
  4. KlonoPIN Oral Tablet [Concomitant]
  5. AMPYRA [Concomitant]
     Active Substance: DALFAMPRIDINE

REACTIONS (10)
  - Gait disturbance [None]
  - Temperature intolerance [None]
  - Hypoaesthesia [None]
  - Fatigue [None]
  - Sleep disorder [None]
  - Muscle spasticity [None]
  - Visual impairment [None]
  - Injection site bruising [None]
  - Nasopharyngitis [None]
  - Head discomfort [None]

NARRATIVE: CASE EVENT DATE: 20251103
